FAERS Safety Report 12900486 (Version 1)
Quarter: 2016Q4

REPORT INFORMATION
  Report Type: Spontaneous
  Country: US (occurrence: US)
  Receive Date: 20161101
  Receipt Date: 20161101
  Transmission Date: 20170207
  Serious: Yes (Other)
  Sender: FDA-Public Use
  Company Number: US-ENDO PHARMACEUTICALS INC.-2016-006560

PATIENT
  Age: 74 Year
  Sex: Female

DRUGS (1)
  1. TEMAZEPAM CAPSULES 15MG [Suspect]
     Active Substance: TEMAZEPAM
     Indication: PRODUCT USED FOR UNKNOWN INDICATION
     Route: 065

REACTIONS (2)
  - Femur fracture [Not Recovered/Not Resolved]
  - Limb operation [Recovered/Resolved]

NARRATIVE: CASE EVENT DATE: 201608
